FAERS Safety Report 8274631-5 (Version None)
Quarter: 2012Q2

REPORT INFORMATION
  Report Type: 
  Country: None (occurrence: None)
  Receive Date: 20120411
  Receipt Date: 20120404
  Transmission Date: 20120825
  Serious: Yes (Death)
  Sender: FDA-Public Use
  Company Number: US-GLAXOSMITHKLINE-A0971631A

PATIENT
  Age: 70 Year
  Sex: Female

DRUGS (2)
  1. PAIN MEDICATION [Concomitant]
  2. VOTRIENT [Suspect]
     Indication: RENAL CELL CARCINOMA
     Dosage: 4TAB PER DAY
     Route: 048
     Dates: start: 20100301, end: 20120101

REACTIONS (4)
  - DRUG INEFFECTIVE [None]
  - METASTASES TO STOMACH [None]
  - RENAL CELL CARCINOMA [None]
  - DEATH [None]
